FAERS Safety Report 8135258-9 (Version None)
Quarter: 2012Q1

REPORT INFORMATION
  Report Type: 
  Country: None (occurrence: None)
  Receive Date: 20120214
  Receipt Date: 20120131
  Transmission Date: 20120608
  Serious: Yes (Death, Other)
  Sender: FDA-Public Use
  Company Number: SG-CELGENEUS-141-CTHAL-12020190

PATIENT

DRUGS (8)
  1. THALIDOMIDE [Suspect]
     Indication: MULTIPLE MYELOMA
     Route: 048
  2. VELCADE [Concomitant]
     Indication: MULTIPLE MYELOMA
     Route: 065
  3. PREDNISOLONE [Concomitant]
     Route: 065
  4. LAMIVUDINE [Concomitant]
     Indication: PROPHYLAXIS
     Route: 065
  5. MELPHALAN HYDROCHLORIDE [Concomitant]
     Route: 065
  6. ADRIAMYCIN PFS [Concomitant]
     Indication: MULTIPLE MYELOMA
     Route: 065
  7. DEXAMETHASONE [Concomitant]
     Indication: MULTIPLE MYELOMA
     Route: 065
  8. ADEFOVIR [Concomitant]
     Route: 065

REACTIONS (2)
  - HEPATITIS FULMINANT [None]
  - HEPATITIS B [None]
